FAERS Safety Report 5367789-9 (Version None)
Quarter: 2007Q2

REPORT INFORMATION
  Report Type: 
  Country: None (occurrence: None)
  Receive Date: 20070622
  Receipt Date: 20070620
  Transmission Date: 20071010
  Serious: Yes (Death)
  Sender: FDA-Public Use
  Company Number: JP-BRISTOL-MYERS SQUIBB COMPANY-13820295

PATIENT
  Age: 49 Year
  Sex: Female

DRUGS (5)
  1. BRIPLATIN [Suspect]
     Indication: OVARIAN CANCER
     Route: 041
  2. VEPESID [Suspect]
     Indication: OVARIAN CANCER
     Route: 048
  3. ADRIAMYCIN PFS [Concomitant]
     Route: 042
  4. ENDOXAN [Concomitant]
     Route: 042
  5. IRINOTECAN HCL [Concomitant]
     Route: 042

REACTIONS (1)
  - MYELODYSPLASTIC SYNDROME [None]
